FAERS Safety Report 4368887-9 (Version None)
Quarter: 2004Q2

REPORT INFORMATION
  Report Type: 
  Country: None (occurrence: None)
  Receive Date: 20040527
  Receipt Date: 20040511
  Transmission Date: 20050107
  Serious: Yes (Hospitalization, Other)
  Sender: FDA-Public Use
  Company Number: USA021123575

PATIENT
  Age: 80 Year
  Sex: Female

DRUGS (2)
  1. ZYPREXA [Suspect]
     Indication: PSYCHOTIC DISORDER
     Dosage: 2.5 MG /AT BEDTIME
  2. NAPROXEN [Concomitant]

REACTIONS (3)
  - CHOLELITHIASIS [None]
  - PSYCHOTIC DISORDER [None]
  - RHABDOMYOLYSIS [None]
